FAERS Safety Report 5411945-8 (Version None)
Quarter: 2007Q3

REPORT INFORMATION
  Report Type: 
  Country: None (occurrence: None)
  Receive Date: 20070813
  Receipt Date: 20070801
  Transmission Date: 20080115
  Serious: Yes (Other)
  Sender: FDA-Public Use
  Company Number: JP-ELI_LILLY_AND_COMPANY-JP200708000584

PATIENT
  Age: 66 Year
  Sex: Female
  Weight: 55 kg

DRUGS (6)
  1. GEMZAR [Suspect]
     Indication: PLEURAL MESOTHELIOMA MALIGNANT
     Dosage: 1500 MG, OTHER
     Route: 042
     Dates: start: 20051227, end: 20060518
  2. GEMZAR [Suspect]
     Dosage: 1200 MG, OTHER
     Route: 042
     Dates: start: 20060608, end: 20060620
  3. CISPLATIN [Concomitant]
     Indication: PLEURAL MESOTHELIOMA MALIGNANT
     Dosage: 60 MG, OTHER
     Route: 034
     Dates: start: 20051227, end: 20060221
  4. CARBOPLATIN [Concomitant]
     Indication: PLEURAL MESOTHELIOMA MALIGNANT
     Dosage: 200 MG, OTHER
     Route: 042
     Dates: start: 20060518, end: 20061130
  5. LENDORMIN [Concomitant]
     Indication: INSOMNIA
     Dosage: 0.25 MG, DAILY (1/D)
     Route: 048
     Dates: start: 20051223, end: 20070228
  6. NAVELBINE [Concomitant]
     Indication: PLEURAL MESOTHELIOMA MALIGNANT
     Dosage: 30 MG, OTHER
     Route: 042
     Dates: start: 20060608, end: 20061012

REACTIONS (6)
  - DECREASED APPETITE [None]
  - DISEASE PROGRESSION [None]
  - INFLAMMATION [None]
  - INTERSTITIAL LUNG DISEASE [None]
  - PLEURAL EFFUSION [None]
  - PNEUMONIA [None]
